FAERS Safety Report 25595196 (Version 2)
Quarter: 2025Q3

REPORT INFORMATION
  Report Type: Report from Study
  Country: US (occurrence: US)
  Receive Date: 20250723
  Receipt Date: 20250905
  Transmission Date: 20251021
  Serious: Yes (Death)
  Sender: ALEXION PHARMACEUTICALS
  Company Number: US-AstraZeneca-CH-00913235A

PATIENT
  Sex: Male
  Weight: 129 kg

DRUGS (5)
  1. DAPAGLIFLOZIN [Suspect]
     Active Substance: DAPAGLIFLOZIN
     Dosage: 10 MILLIGRAM, QD
     Dates: start: 202303
  2. BRILINTA [Suspect]
     Active Substance: TICAGRELOR
     Dosage: 60 MILLIGRAM, BID
  3. Metopro [Concomitant]
  4. Toy [Concomitant]
  5. Methoca [Concomitant]

REACTIONS (2)
  - Syncope [Fatal]
  - Ventricular tachycardia [Fatal]
